FAERS Safety Report 9404588 (Version 3)
Quarter: 2013Q4

REPORT INFORMATION
  Report Type: Spontaneous
  Country: US (occurrence: US)
  Receive Date: 20130717
  Receipt Date: 20131204
  Transmission Date: 20140711
  Serious: No
  Sender: FDA-Public Use
  Company Number: US-PFIZER INC-2013209326

PATIENT
  Age: 48 Year
  Sex: Female
  Weight: 68.03 kg

DRUGS (2)
  1. PRISTIQ [Suspect]
     Indication: ANXIETY
     Dosage: 100 MG, UNK
     Dates: start: 201302
  2. PRISTIQ [Suspect]
     Indication: DEPRESSION

REACTIONS (1)
  - Constipation [Unknown]
